FAERS Safety Report 20508427 (Version 1)
Quarter: 2022Q1

REPORT INFORMATION
  Report Type: Spontaneous
  Country: US (occurrence: US)
  Receive Date: 20220223
  Receipt Date: 20220223
  Transmission Date: 20220423
  Serious: No
  Sender: FDA-Public Use
  Company Number: US-ELI_LILLY_AND_COMPANY-US202202008599

PATIENT
  Sex: Female

DRUGS (1)
  1. TRULICITY [Suspect]
     Active Substance: DULAGLUTIDE
     Indication: Weight decreased
     Dosage: 0.75 MG, UNKNOWN
     Route: 065
     Dates: start: 20220215

REACTIONS (5)
  - Back pain [Unknown]
  - Dyspepsia [Unknown]
  - Abdominal pain upper [Unknown]
  - Eructation [Unknown]
  - Off label use [Unknown]

NARRATIVE: CASE EVENT DATE: 20220215
